FAERS Safety Report 9460627 (Version 2)
Quarter: 2013Q3

REPORT INFORMATION
  Report Type: Spontaneous
  Country: US (occurrence: US)
  Receive Date: 20130815
  Receipt Date: 20130829
  Transmission Date: 20140515
  Serious: Yes (Other)
  Sender: FDA-Public Use
  Company Number: US-B.I. PHARMACEUTICALS,INC./RIDGEFIELD-2013-BI-24072BP

PATIENT
  Sex: Female
  Weight: 71 kg

DRUGS (16)
  1. SPIRIVA [Suspect]
     Indication: ASTHMA
     Dosage: 18 MCG
     Route: 055
     Dates: start: 2008
  2. RISPERIDONE [Concomitant]
     Indication: BIPOLAR DISORDER
     Dosage: 0.5 MG
     Route: 048
     Dates: start: 2003
  3. KLONOPIN [Concomitant]
     Indication: BIPOLAR DISORDER
     Dosage: 1 MG
     Route: 048
     Dates: start: 2003
  4. TEGRETOL [Concomitant]
     Indication: BIPOLAR DISORDER
     Dosage: 600 MG
     Route: 048
     Dates: start: 2003
  5. OXYCODONE [Concomitant]
     Indication: OSTEOARTHRITIS
     Dosage: STRENGTH 1 TABLET
     Route: 048
     Dates: start: 2007
  6. OXYCODONE [Concomitant]
     Indication: SPINAL OSTEOARTHRITIS
  7. AMBIEN [Concomitant]
     Indication: INSOMNIA
     Dosage: 10 MG
     Route: 048
     Dates: start: 2011
  8. PROTONIX [Concomitant]
     Indication: DYSPEPSIA
     Dosage: 40 MG
     Route: 048
     Dates: start: 2007
  9. PROMETHAZINE [Concomitant]
     Indication: NAUSEA
     Route: 048
     Dates: start: 2007
  10. SYNTHROID [Concomitant]
     Indication: HYPOTHYROIDISM
     Dosage: 0.05 MG
     Route: 048
     Dates: start: 1993
  11. ZYRTEC [Concomitant]
     Indication: SNEEZING
     Dosage: STRENGTH: 1 TABLET; DAILY DOSE: 1 TABLET
     Route: 048
     Dates: start: 1990
  12. RUGBY [Concomitant]
     Indication: ASTHMA
     Dosage: 250 MG
     Route: 048
     Dates: start: 2007
  13. COREG [Concomitant]
     Indication: HYPERTENSION
     Dosage: 6.25 MG
     Route: 048
     Dates: start: 1994
  14. NEURONTIN [Concomitant]
     Indication: BIPOLAR DISORDER
     Dosage: 600 MG
     Route: 048
     Dates: start: 2003
  15. CRESTOR [Concomitant]
     Indication: BLOOD CHOLESTEROL INCREASED
     Dosage: 20 MG
     Route: 048
     Dates: start: 2011
  16. ASPIRIN [Concomitant]
     Indication: CORONARY ARTERY DISEASE
     Dosage: 81 MG
     Route: 048
     Dates: start: 2001

REACTIONS (4)
  - Lung neoplasm malignant [Not Recovered/Not Resolved]
  - Sight disability [Not Recovered/Not Resolved]
  - Fatigue [Not Recovered/Not Resolved]
  - Off label use [Not Recovered/Not Resolved]
